FAERS Safety Report 18662061 (Version 7)
Quarter: 2022Q4

REPORT INFORMATION
  Report Type: Report from Study
  Country: US (occurrence: US)
  Receive Date: 20201224
  Receipt Date: 20221219
  Transmission Date: 20230113
  Serious: Yes (Hospitalization, Other)
  Sender: FDA-Public Use
  Company Number: US-TAKEDA-US202023282

PATIENT
  Age: 49 Year
  Sex: Male

DRUGS (4)
  1. HUMAN IMMUNOGLOBULIN G [Suspect]
     Active Substance: HUMAN IMMUNOGLOBULIN G
     Indication: Immunodeficiency common variable
     Dosage: 50 GRAM
     Route: 065
  2. HUMAN IMMUNOGLOBULIN G [Suspect]
     Active Substance: HUMAN IMMUNOGLOBULIN G
     Indication: Immunodeficiency common variable
     Dosage: 50 GRAM
     Route: 065
  3. HUMAN IMMUNOGLOBULIN G [Suspect]
     Active Substance: HUMAN IMMUNOGLOBULIN G
     Indication: Primary immunodeficiency syndrome
  4. HUMAN IMMUNOGLOBULIN G [Suspect]
     Active Substance: HUMAN IMMUNOGLOBULIN G
     Indication: Primary immunodeficiency syndrome

REACTIONS (17)
  - Multiple fractures [Unknown]
  - Pneumothorax [Unknown]
  - Choking [Unknown]
  - Oesophageal candidiasis [Unknown]
  - Road traffic accident [Unknown]
  - Skin laceration [Unknown]
  - Gastrooesophageal reflux disease [Unknown]
  - Oesophageal spasm [Unknown]
  - Internal haemorrhage [Unknown]
  - COVID-19 [Recovering/Resolving]
  - Renal pain [Unknown]
  - Hypersensitivity [Unknown]
  - Influenza like illness [Unknown]
  - Sinusitis [Unknown]
  - Gastroenteritis [Unknown]
  - Malaise [Unknown]
  - Insurance issue [Unknown]

NARRATIVE: CASE EVENT DATE: 20210820
